FAERS Safety Report 8834368 (Version 1)
Quarter: 2012Q4

REPORT INFORMATION
  Report Type: 
  Country: US (occurrence: US)
  Receive Date: 20121010
  Receipt Date: 20121010
  Transmission Date: 20130627
  Serious: No
  Sender: FDA-Public Use
  Company Number: US-TEVA-363114USA

PATIENT
  Age: 49 Year
  Sex: Female
  Weight: 104.42 kg

DRUGS (2)
  1. NUVIGIL [Suspect]
     Indication: SLEEP APNOEA SYNDROME
     Dosage: 250 Milligram Daily;
     Route: 048
     Dates: start: 20120927
  2. NUVIGIL [Suspect]
     Indication: CIRCADIAN RHYTHM SLEEP DISORDER

REACTIONS (2)
  - Somnolence [Not Recovered/Not Resolved]
  - Fatigue [Not Recovered/Not Resolved]
